FAERS Safety Report 20176884 (Version 1)
Quarter: 2021Q4

REPORT INFORMATION
  Report Type: Report from Study
  Country: GB (occurrence: GB)
  Receive Date: 20211213
  Receipt Date: 20211213
  Transmission Date: 20220303
  Serious: Yes (Other)
  Sender: FDA-Public Use
  Company Number: GB-NOVARTISPH-NVSC2021GB281419

PATIENT
  Sex: Female

DRUGS (1)
  1. OMNITROPE [Suspect]
     Active Substance: SOMATROPIN
     Indication: Product used for unknown indication
     Dosage: 0.7 MG, QD
     Route: 065

REACTIONS (10)
  - Growth hormone deficiency [Unknown]
  - Secondary hypothyroidism [Unknown]
  - Autism spectrum disorder [Unknown]
  - Iron deficiency [Unknown]
  - Short stature [Unknown]
  - Dysmorphism [Unknown]
  - Hypoglycaemia [Unknown]
  - Constipation [Unknown]
  - Hypermobility syndrome [Unknown]
  - Sleep disorder [Unknown]
